FAERS Safety Report 18665764 (Version 1)
Quarter: 2020Q4

REPORT INFORMATION
  Report Type: Spontaneous
  Country: CN (occurrence: CN)
  Receive Date: 20201226
  Receipt Date: 20201226
  Transmission Date: 20210114
  Serious: Yes (Other)
  Sender: FDA-Public Use
  Company Number: CN-009507513-2012CHN010287

PATIENT
  Age: 10 Year
  Sex: Female

DRUGS (2)
  1. TIENAM [Suspect]
     Active Substance: CILASTATIN SODIUM\IMIPENEM
     Indication: INFECTION
     Dosage: 390 MILLIGRAM, Q8H
     Route: 041
     Dates: start: 20201210, end: 20201213
  2. SODIUM CHLORIDE. [Suspect]
     Active Substance: SODIUM CHLORIDE
     Indication: INFECTION
     Dosage: 100 MILLILITER, Q8H
     Dates: start: 20201210

REACTIONS (4)
  - Pupillary reflex impaired [Recovering/Resolving]
  - Unresponsive to stimuli [Recovering/Resolving]
  - Depressed level of consciousness [Recovering/Resolving]
  - Seizure [Recovering/Resolving]

NARRATIVE: CASE EVENT DATE: 20201213
